FAERS Safety Report 10345144 (Version 4)
Quarter: 2014Q4

REPORT INFORMATION
  Report Type: Spontaneous
  Country: US (occurrence: US)
  Receive Date: 20140728
  Receipt Date: 20141125
  Transmission Date: 20150528
  Serious: Yes (Hospitalization, Other)
  Sender: FDA-Public Use
  Company Number: US-BAYER-2014-107818

PATIENT
  Age: 44 Year
  Sex: Female

DRUGS (7)
  1. XANAX [Concomitant]
     Active Substance: ALPRAZOLAM
  2. CIPRO [Concomitant]
     Active Substance: CIPROFLOXACIN HYDROCHLORIDE
  3. ZOFRAN [Concomitant]
     Active Substance: ONDANSETRON HYDROCHLORIDE
  4. CARVEDILOL. [Concomitant]
     Active Substance: CARVEDILOL
     Dosage: UNK
     Dates: start: 2006
  5. MIRENA [Suspect]
     Active Substance: LEVONORGESTREL
     Indication: CONTRACEPTION
     Dosage: 20 MCG/24HR, CONT
     Route: 015
     Dates: start: 20090312, end: 20120718
  6. LABETALOL [Concomitant]
     Active Substance: LABETALOL\LABETALOL HYDROCHLORIDE
  7. PAROXETINE [Concomitant]
     Active Substance: PAROXETINE\PAROXETINE HYDROCHLORIDE
     Indication: ANTIDEPRESSANT THERAPY
     Dosage: UNK
     Dates: start: 2011

REACTIONS (17)
  - Abdominal pain lower [Not Recovered/Not Resolved]
  - Abdominal pain [Not Recovered/Not Resolved]
  - Device issue [None]
  - Embedded device [None]
  - Back pain [None]
  - Pelvic pain [Not Recovered/Not Resolved]
  - Pain [Not Recovered/Not Resolved]
  - Malaise [None]
  - Adverse event [None]
  - Device breakage [None]
  - Bladder injury [None]
  - Device dislocation [Not Recovered/Not Resolved]
  - Depression [None]
  - Anxiety [None]
  - Injury [Not Recovered/Not Resolved]
  - Adnexa uteri cyst [None]
  - Emotional distress [None]

NARRATIVE: CASE EVENT DATE: 2009
